FAERS Safety Report 16014766 (Version 2)
Quarter: 2019Q1

REPORT INFORMATION
  Report Type: Spontaneous
  Country: NL (occurrence: NL)
  Receive Date: 20190227
  Receipt Date: 20190318
  Transmission Date: 20190418
  Serious: Yes (Other)
  Sender: FDA-Public Use
  Company Number: PHHY2019NL042599

PATIENT
  Age: 33 Year
  Sex: Male

DRUGS (5)
  1. SERTRALINE [Concomitant]
     Active Substance: SERTRALINE HYDROCHLORIDE
     Dosage: 3 DF, QD
     Route: 065
  2. RISPERIDONA [Suspect]
     Active Substance: RISPERIDONE
     Indication: AFFECTIVE DISORDER
     Dosage: 2 DF, QD
     Route: 065
     Dates: end: 20121203
  3. SERTRALINE [Concomitant]
     Active Substance: SERTRALINE HYDROCHLORIDE
     Indication: PRODUCT USED FOR UNKNOWN INDICATION
     Dosage: 2 DF, QD
     Route: 065
  4. RISPERIDONA [Suspect]
     Active Substance: RISPERIDONE
     Dosage: 3 DF, QD
     Route: 065
     Dates: end: 20121203
  5. BENEFIX [Suspect]
     Active Substance: COAGULATION FACTOR IX RECOMBINANT HUMAN\ISOPROPYL ALCOHOL
     Indication: FACTOR IX DEFICIENCY
     Dosage: UNK
     Route: 065

REACTIONS (9)
  - Binge eating [Recovering/Resolving]
  - Anxiety [Unknown]
  - Arthralgia [Unknown]
  - Insomnia [Not Recovered/Not Resolved]
  - Weight increased [Unknown]
  - Malaise [Unknown]
  - Sleep disorder [Not Recovered/Not Resolved]
  - Aggression [Unknown]
  - Epistaxis [Unknown]

NARRATIVE: CASE EVENT DATE: 20121026
